FAERS Safety Report 25879954 (Version 1)
Quarter: 2025Q4

REPORT INFORMATION
  Report Type: Spontaneous
  Country: GB (occurrence: GB)
  Receive Date: 20251004
  Receipt Date: 20251004
  Transmission Date: 20260117
  Serious: Yes (Other)
  Sender: AUROBINDO
  Company Number: GB-MHRA-MED-202509201042230350-VZFMY

PATIENT
  Age: 75 Year
  Sex: Female
  Weight: 43 kg

DRUGS (2)
  1. ATORVASTATIN [Interacting]
     Active Substance: ATORVASTATIN
     Indication: Product used for unknown indication
     Dosage: 40 MILLIGRAM
     Route: 065
  2. VISMODEGIB [Suspect]
     Active Substance: VISMODEGIB
     Indication: Basal cell carcinoma
     Dosage: 150MG EVERY 3 DAYS150MG EVERY OTHER DAY FOR 3 MONTHS AND HAD THEN 8 WEEKS OFF THE TREATMENT.
     Route: 065
     Dates: start: 20250407, end: 20250914

REACTIONS (3)
  - Weight decreased [Recovering/Resolving]
  - Drug interaction [Unknown]
  - Decreased appetite [Unknown]

NARRATIVE: CASE EVENT DATE: 20250606
